FAERS Safety Report 7046522-9 (Version None)
Quarter: 2010Q4

REPORT INFORMATION
  Report Type: 
  Country: None (occurrence: None)
  Receive Date: 20101014
  Receipt Date: 20100930
  Transmission Date: 20110411
  Serious: Yes (Hospitalization, Disabling)
  Sender: FDA-Public Use
  Company Number: HU-GENENTECH-306254

PATIENT
  Sex: Male
  Weight: 75 kg

DRUGS (13)
  1. BLINDED PLACEBO [Suspect]
     Indication: DIABETIC RETINAL OEDEMA
     Dosage: UNK
     Route: 031
     Dates: start: 20081021, end: 20091217
  2. BLINDED RANIBIZUMAB [Suspect]
     Indication: DIABETIC RETINAL OEDEMA
     Dosage: UNK
     Route: 031
     Dates: start: 20081021, end: 20091217
  3. BLINDED PLACEBO [Suspect]
     Dosage: UNK
     Route: 031
     Dates: start: 20100526
  4. BLINDED RANIBIZUMAB [Suspect]
     Dosage: UNK
     Route: 031
     Dates: start: 20100526
  5. DOXIUM [Concomitant]
     Indication: PRODUCT USED FOR UNKNOWN INDICATION
  6. DIAPREL [Concomitant]
     Indication: PRODUCT USED FOR UNKNOWN INDICATION
  7. PRENESSA [Concomitant]
     Indication: PRODUCT USED FOR UNKNOWN INDICATION
  8. INDAPAMIDE [Concomitant]
     Indication: PRODUCT USED FOR UNKNOWN INDICATION
  9. METOPROLOL [Concomitant]
     Indication: PRODUCT USED FOR UNKNOWN INDICATION
  10. CARDURA [Concomitant]
     Indication: PRODUCT USED FOR UNKNOWN INDICATION
  11. SYNCUMAR [Concomitant]
     Indication: PRODUCT USED FOR UNKNOWN INDICATION
  12. CYMBALTA [Concomitant]
     Indication: PRODUCT USED FOR UNKNOWN INDICATION
  13. NIMESULIDE [Concomitant]
     Indication: PRODUCT USED FOR UNKNOWN INDICATION

REACTIONS (2)
  - CELLULITIS [None]
  - OSTEITIS [None]
